FAERS Safety Report 4493219-5 (Version None)
Quarter: 2004Q4

REPORT INFORMATION
  Report Type: 
  Country: None (occurrence: None)
  Receive Date: 20041025
  Receipt Date: 20040204
  Transmission Date: 20050328
  Serious: No
  Sender: FDA-Public Use
  Company Number: CART-10306

PATIENT
  Age: 45 Year
  Sex: Female
  Weight: 81.6475 kg

DRUGS (1)
  1. CARTICEL [Suspect]
     Indication: ARTHROPATHY
     Dosage: 1 NA ONCE IS
     Route: 035
     Dates: start: 20021008, end: 20021008

REACTIONS (4)
  - ARTHRALGIA [None]
  - DISEASE PROGRESSION [None]
  - FAILURE OF IMPLANT [None]
  - POST PROCEDURAL COMPLICATION [None]
